FAERS Safety Report 15198333 (Version 1)
Quarter: 2018Q3

REPORT INFORMATION
  Report Type: Spontaneous
  Country: BR (occurrence: BR)
  Receive Date: 20180725
  Receipt Date: 20180725
  Transmission Date: 20181010
  Serious: Yes (Life-Threatening, Other)
  Sender: FDA-Public Use
  Company Number: PHHY2018BR051780

PATIENT
  Sex: Female
  Weight: 53 kg

DRUGS (5)
  1. OLCADIL [Suspect]
     Active Substance: CLOXAZOLAM
     Indication: PRODUCT USED FOR UNKNOWN INDICATION
     Dosage: 1 DF, QD
     Route: 048
  2. CLOXAZOLAM [Suspect]
     Active Substance: CLOXAZOLAM
     Indication: PANIC ATTACK
     Dosage: 1 DF, QD
     Route: 048
  3. PURAN [Concomitant]
     Active Substance: LEVOTHYROXINE SODIUM
     Indication: THYROID DISORDER
     Dosage: 1 DF, QD
     Route: 048
  4. ALPRAZOLAM. [Suspect]
     Active Substance: ALPRAZOLAM
     Indication: PRODUCT USED FOR UNKNOWN INDICATION
     Dosage: UNK, BID
     Route: 065
  5. LOSARTAN. [Concomitant]
     Active Substance: LOSARTAN
     Indication: HYPERTENSION
     Dosage: 1 DF, QD
     Route: 048

REACTIONS (14)
  - Nervousness [Recovered/Resolved]
  - Wrong technique in product usage process [Unknown]
  - Hypoaesthesia [Recovered/Resolved]
  - Feeling abnormal [Recovering/Resolving]
  - Dizziness [Recovered/Resolved]
  - Skin discolouration [Recovered/Resolved]
  - Nonspecific reaction [Recovered/Resolved]
  - Chromaturia [Recovered/Resolved]
  - Peripheral coldness [Recovered/Resolved]
  - Dysphagia [Recovering/Resolving]
  - Crying [Recovering/Resolving]
  - Speech disorder [Not Recovered/Not Resolved]
  - Agitation [Recovered/Resolved]
  - Tremor [Unknown]
